FAERS Safety Report 19246701 (Version 1)
Quarter: 2021Q2

REPORT INFORMATION
  Report Type: Spontaneous
  Country: US (occurrence: US)
  Receive Date: 20210512
  Receipt Date: 20210512
  Transmission Date: 20210717
  Serious: Yes (Hospitalization)
  Sender: FDA-Public Use
  Company Number: None

PATIENT
  Sex: Female

DRUGS (15)
  1. TRIKAFTA [Concomitant]
     Active Substance: ELEXACAFTOR\IVACAFTOR\TEZACAFTOR
  2. MVW COMPLETE [Concomitant]
  3. CREON [Concomitant]
     Active Substance: PANCRELIPASE AMYLASE\PANCRELIPASE LIPASE\PANCRELIPASE PROTEASE
  4. ADVAIR HFA [Concomitant]
     Active Substance: FLUTICASONE PROPIONATE\SALMETEROL XINAFOATE
  5. ESOMEPRAZOLE. [Concomitant]
     Active Substance: ESOMEPRAZOLE MAGNESIUM
  6. URSODIOL. [Concomitant]
     Active Substance: URSODIOL
  7. PARI ALTERA PARI ALTERA [Concomitant]
  8. GVOKE HYPO [Concomitant]
  9. PULMOZYME [Concomitant]
     Active Substance: DORNASE ALFA
  10. SCANDISHAKE VANILLA (4) [Concomitant]
  11. LEVALBUTEROL. [Concomitant]
     Active Substance: LEVALBUTEROL
  12. ONDANSETRON HCL [Concomitant]
     Active Substance: ONDANSETRON HYDROCHLORIDE
  13. OMNIPOD 5 PACK [Concomitant]
  14. FLUVOXAMINE MALEATE. [Suspect]
     Active Substance: FLUVOXAMINE MALEATE
     Indication: PRODUCT USED FOR UNKNOWN INDICATION
     Route: 065
  15. CAYSTON [Concomitant]
     Active Substance: AZTREONAM

REACTIONS (1)
  - Suicidal ideation [None]
